FAERS Safety Report 24782931 (Version 2)
Quarter: 2025Q3

REPORT INFORMATION
  Report Type: Spontaneous
  Country: US (occurrence: US)
  Receive Date: 20241227
  Receipt Date: 20250703
  Transmission Date: 20251020
  Serious: Yes (Hospitalization, Other)
  Sender: PARATEK PHARMACEUTICALS
  Company Number: US-PARATEK PHARMACEUTICALS, INC.-2024PTK01192

PATIENT
  Age: 57 Year
  Sex: Male

DRUGS (5)
  1. OMADACYCLINE [Suspect]
     Active Substance: OMADACYCLINE
     Indication: Mycobacterium abscessus infection
     Dosage: 450 MG, 1X/DAY
     Route: 048
     Dates: start: 20240329, end: 20240330
  2. OMADACYCLINE [Suspect]
     Active Substance: OMADACYCLINE
     Indication: Peritonitis bacterial
     Dosage: 300 MG, 1X/DAY
     Route: 048
     Dates: start: 20240331, end: 20240831
  3. AMIKACIN [Suspect]
     Active Substance: AMIKACIN
     Indication: Mycobacterium abscessus infection
     Route: 042
     Dates: start: 20240319
  4. AMIKACIN [Suspect]
     Active Substance: AMIKACIN
     Route: 042
     Dates: start: 202403, end: 20240831
  5. AZITHROMYCIN [Suspect]
     Active Substance: AZITHROMYCIN
     Indication: Mycobacterium abscessus infection
     Dosage: 500 MG, 1X/DAY
     Route: 048
     Dates: start: 20240319, end: 20240430

REACTIONS (5)
  - Cellulitis [Unknown]
  - Ulcer [Unknown]
  - Pseudomonas infection [Unknown]
  - Off label use [Recovered/Resolved]
  - Incorrect product administration duration [Recovered/Resolved]

NARRATIVE: CASE EVENT DATE: 20240329
